FAERS Safety Report 19158182 (Version 5)
Quarter: 2025Q3

REPORT INFORMATION
  Report Type: Spontaneous
  Country: AU (occurrence: AU)
  Receive Date: 20210420
  Receipt Date: 20250728
  Transmission Date: 20251021
  Serious: Yes (Life-Threatening, Hospitalization, Other)
  Sender: PFIZER
  Company Number: AU-MLMSERVICE-20210402-2820013-1

PATIENT
  Age: 43 Year
  Sex: Female

DRUGS (17)
  1. EPINEPHRINE [Suspect]
     Active Substance: EPINEPHRINE
     Indication: Infiltration anaesthesia
  2. EPINEPHRINE [Suspect]
     Active Substance: EPINEPHRINE
     Indication: Hypotension
     Route: 042
  3. EPINEPHRINE [Suspect]
     Active Substance: EPINEPHRINE
     Route: 040
  4. EPINEPHRINE [Suspect]
     Active Substance: EPINEPHRINE
  5. NOREPINEPHRINE BITARTRATE [Suspect]
     Active Substance: NOREPINEPHRINE BITARTRATE
  6. DULOXETINE [Suspect]
     Active Substance: DULOXETINE
     Indication: Depression
     Dosage: 60 MG, DAILY
  7. THYROXINE [Concomitant]
     Active Substance: LEVOTHYROXINE
     Indication: Hypothyroidism
     Dosage: 100 UG, DAILY
  8. AMOXICILLIN [Concomitant]
     Active Substance: AMOXICILLIN
     Indication: Prophylaxis
  9. ATROPINE [Concomitant]
     Active Substance: ATROPINE
     Route: 042
  10. OXYGEN [Concomitant]
     Active Substance: OXYGEN
     Route: 055
  11. ONDANSETRON [Concomitant]
     Active Substance: ONDANSETRON
     Route: 042
  12. LIDOCAINE [Concomitant]
     Active Substance: LIDOCAINE
     Indication: Infiltration anaesthesia
  13. LIDOCAINE [Concomitant]
     Active Substance: LIDOCAINE
     Indication: Induction of anaesthesia
     Route: 042
  14. PREDNISOLONE [Concomitant]
     Active Substance: PREDNISOLONE
     Indication: Autoimmune hepatitis
     Dosage: 5 MG, DAILY
  15. PROPOFOL [Concomitant]
     Active Substance: PROPOFOL
     Indication: Sedation
     Route: 042
  16. PROPOFOL [Concomitant]
     Active Substance: PROPOFOL
     Route: 042
  17. FENTANYL [Concomitant]
     Active Substance: FENTANYL
     Route: 042

REACTIONS (4)
  - Stress cardiomyopathy [Recovered/Resolved]
  - Cardiac arrest [Recovered/Resolved]
  - Metabolic acidosis [Recovered/Resolved]
  - Hypokalaemia [Recovered/Resolved]
